FAERS Safety Report 8213210-2 (Version None)
Quarter: 2012Q1

REPORT INFORMATION
  Report Type: 
  Country: None (occurrence: None)
  Receive Date: 20120228
  Receipt Date: 20110510
  Transmission Date: 20120608
  Serious: Yes (Hospitalization, Other)
  Sender: FDA-Public Use
  Company Number: RB-27263-2011

PATIENT
  Age: 50 Year
  Sex: Male

DRUGS (2)
  1. OPIOIDS (NONE) [Suspect]
     Indication: DRUG DEPENDENCE
     Dosage: (TRANSPLACENTAL)
     Route: 064
  2. SUBOXONE [Suspect]
     Indication: DRUG DEPENDENCE
     Dosage: (VARIED  DOSES TRANSPLACENTAL)
     Route: 064
     Dates: end: 20110510

REACTIONS (3)
  - FOETAL EXPOSURE DURING PREGNANCY [None]
  - DRUG WITHDRAWAL SYNDROME NEONATAL [None]
  - DERMATITIS DIAPER [None]
